FAERS Safety Report 10362645 (Version 3)
Quarter: 2014Q3

REPORT INFORMATION
  Report Type: Spontaneous
  Country: IT (occurrence: IT)
  Receive Date: 20140805
  Receipt Date: 20140922
  Transmission Date: 20150326
  Serious: Yes (Hospitalization)
  Sender: FDA-Public Use
  Company Number: IT-SA-2014SA102422

PATIENT
  Age: 84 Year
  Sex: Male

DRUGS (4)
  1. PLAVIX [Suspect]
     Active Substance: CLOPIDOGREL BISULFATE
     Indication: PRODUCT USED FOR UNKNOWN INDICATION
     Route: 048
     Dates: start: 20130101, end: 20130916
  2. NEBILOX [Concomitant]
     Active Substance: NEBIVOLOL HYDROCHLORIDE
  3. SIMETHICONE [Concomitant]
     Active Substance: DIMETHICONE\SILICON DIOXIDE\SIMETHICONE
  4. PROCAPTAN [Concomitant]
     Active Substance: PERINDOPRIL ERBUMINE

REACTIONS (6)
  - Aphasia [Recovering/Resolving]
  - Hiccups [Recovering/Resolving]
  - Cerebral haemorrhage [Recovering/Resolving]
  - Balance disorder [Recovering/Resolving]
  - Asthenia [Recovering/Resolving]
  - Haematemesis [Recovering/Resolving]

NARRATIVE: CASE EVENT DATE: 20130916
